FAERS Safety Report 7053279-4 (Version None)
Quarter: 2010Q4

REPORT INFORMATION
  Report Type: 
  Country: None (occurrence: None)
  Receive Date: 20101020
  Receipt Date: 20101006
  Transmission Date: 20110411
  Serious: Yes (Hospitalization, Other)
  Sender: FDA-Public Use
  Company Number: PHHY2010BR67856

PATIENT
  Age: 74 Year
  Sex: Female

DRUGS (1)
  1. EXELON [Suspect]
     Dosage: 1.5 MG, UNK
     Route: 048

REACTIONS (3)
  - DEHYDRATION [None]
  - GASTRITIS [None]
  - HYPOPHAGIA [None]
